FAERS Safety Report 8183081 (Version 3)
Quarter: 2013Q1

REPORT INFORMATION
  Report Type: Spontaneous
  Country: JP (occurrence: None)
  Receive Date: 20111005
  Receipt Date: 20121211
  Transmission Date: 20140127
  Serious: Yes (Life-Threatening, Hospitalization)
  Sender: FDA-Public Use
  Company Number: TCI2011A05005

PATIENT
  Age: 74 Year
  Sex: Female

DRUGS (9)
  1. LANSOPRAZOLE [Suspect]
     Indication: GASTROINTESTINAL HAEMORRHAGE
     Dosage: 1 IN 1 D
     Route: 048
     Dates: start: 20090121, end: 20110702
  2. LANSOPRAZOLE [Suspect]
     Indication: GASTRITIS EROSIVE
     Dosage: 1 IN 1 D
     Route: 048
     Dates: start: 20090121, end: 20110702
  3. CALBLOCK (AZELNIDIPINE) [Concomitant]
  4. DIOVAN [Concomitant]
  5. PREMINENT (HYDROCHLOROTHIAZIDE, LOSARTAN) [Concomitant]
  6. ALFAROL (ALFACALCIDOL) [Concomitant]
  7. EVISTA [Concomitant]
  8. URSO 250 [Concomitant]
  9. PARACETAMOL [Concomitant]

REACTIONS (4)
  - Altered state of consciousness [None]
  - Colitis microscopic [None]
  - Gastritis erosive [None]
  - Gait disturbance [None]
